FAERS Safety Report 16982639 (Version 1)
Quarter: 2019Q4

REPORT INFORMATION
  Report Type: Spontaneous
  Country: GB (occurrence: GB)
  Receive Date: 20191101
  Receipt Date: 20191101
  Transmission Date: 20200122
  Serious: Yes (Other)
  Sender: FDA-Public Use
  Company Number: GB-TEVA-2019-GB-1130432

PATIENT

DRUGS (1)
  1. GLIDIPION [Suspect]
     Active Substance: PIOGLITAZONE

REACTIONS (4)
  - Eye pain [Unknown]
  - Dyspnoea [Unknown]
  - Presyncope [Unknown]
  - Peak expiratory flow rate decreased [Unknown]
